FAERS Safety Report 10026091 (Version 2)
Quarter: 2014Q2

REPORT INFORMATION
  Report Type: Spontaneous
  Country: TR (occurrence: US)
  Receive Date: 20140320
  Receipt Date: 20140401
  Transmission Date: 20141212
  Serious: Yes (Other)
  Sender: FDA-Public Use
  Company Number: TR-ACORDA-ACO_102213_2014

PATIENT
  Age: 42 Year
  Sex: Male

DRUGS (3)
  1. ZANAFLEX [Suspect]
     Indication: MUSCLE SPASMS
     Dosage: UNK,UNK
     Route: 065
  2. MORPHINE [Concomitant]
     Indication: PAIN
     Dosage: UNK,UNK
     Route: 037
  3. OTHER THERAPEUTIC PRODUCTS [Concomitant]
     Indication: PAIN
     Dosage: UNK,UNK
     Route: 048

REACTIONS (1)
  - Pleural effusion [Unknown]
